FAERS Safety Report 6568584-5 (Version None)
Quarter: 2010Q1

REPORT INFORMATION
  Report Type: 
  Country: None (occurrence: None)
  Receive Date: 20100203
  Receipt Date: 20100125
  Transmission Date: 20100710
  Serious: Yes (Hospitalization, Other)
  Sender: FDA-Public Use
  Company Number: US-PFIZER INC-2010010391

PATIENT
  Sex: Female
  Weight: 85.28 kg

DRUGS (21)
  1. CARDURA [Suspect]
     Indication: HYPERTENSION
     Dosage: UNK
     Route: 065
     Dates: start: 20091022, end: 20091024
  2. HUMIRA [Suspect]
     Indication: RHEUMATOID ARTHRITIS
     Dosage: 40 MG, 1 IN 2 WK
     Route: 065
     Dates: start: 20060101, end: 20091023
  3. HUMIRA [Suspect]
     Dosage: 40 MG, 1 IN 2 WK
     Dates: start: 20091115
  4. OMEPRAZOLE [Concomitant]
     Indication: GASTROOESOPHAGEAL REFLUX DISEASE
     Dosage: 20 MG, 1X/DAY
  5. CITALOPRAM [Concomitant]
     Indication: ANXIETY
     Dosage: 25 MG, 1X/DAY
  6. CITALOPRAM [Concomitant]
     Indication: PANIC ATTACK
  7. LOMOTIL [Concomitant]
     Indication: DIARRHOEA
     Dosage: UP TO 4 TABLETS DAILY PRN
  8. AMLODIPINE BESILATE [Concomitant]
     Indication: HYPERTENSION
     Dosage: 10 MG, 1X/DAY
  9. ALISKIREN [Concomitant]
     Indication: HYPERTENSION
     Dosage: 150 MG, 1X/DAY
     Dates: start: 20091026
  10. FOLIC ACID [Concomitant]
     Indication: RHEUMATOID ARTHRITIS
     Dosage: 1600 MCG, 1X/DAY
  11. METHOTREXATE [Concomitant]
     Indication: RHEUMATOID ARTHRITIS
     Dosage: 0.4 ML, WEEKLY
  12. POTASSIUM [Concomitant]
     Indication: BLOOD POTASSIUM DECREASED
     Dosage: 20 MEQ, 1X/DAY
  13. FUROSEMIDE [Concomitant]
     Indication: PULMONARY HYPERTENSION
     Dosage: 60 MG, 2X/DAY
  14. GABAPENTIN [Concomitant]
     Indication: MUSCLE SPASMS
     Dosage: 300 MG, 2X/DAY
  15. GABAPENTIN [Concomitant]
  16. TRAZODONE HYDROCHLORIDE [Concomitant]
     Indication: DEPRESSION
     Dosage: 100 MG, 1X/DAY
  17. SERETIDE [Concomitant]
     Indication: ASTHMA
     Dosage: 250/50, 2 PUFFS ONCE DAILY, 1X/DAY
  18. TIOTROPIUM BROMIDE [Concomitant]
     Indication: ASTHMA
     Dosage: UNK %, 1X/DAY
  19. SALBUTAMOL SULFATE [Concomitant]
     Indication: ASTHMA
     Dosage: UNK,AS NEEDED
  20. COENZYME Q10 [Concomitant]
     Indication: MUSCLE SPASMS
     Dosage: 200 MG, 1X/DAY
  21. CALCIUM [Concomitant]
     Dosage: UNK

REACTIONS (5)
  - CHEST PAIN [None]
  - EXTRASYSTOLES [None]
  - HEART RATE INCREASED [None]
  - NASOPHARYNGITIS [None]
  - URINARY TRACT INFECTION [None]
